FAERS Safety Report 23093702 (Version 1)
Quarter: 2023Q4

REPORT INFORMATION
  Report Type: Report from Study
  Country: IT (occurrence: IT)
  Receive Date: 20231023
  Receipt Date: 20231023
  Transmission Date: 20240110
  Serious: Yes (Hospitalization)
  Sender: FDA-Public Use
  Company Number: None

PATIENT

DRUGS (3)
  1. ALBUTEROL SULFATE [Suspect]
     Active Substance: ALBUTEROL SULFATE
     Indication: Incorrect route of product administration
     Dosage: 6 GTT, 1 GTT = 0.25 MG TAKING 1.5 MG IN A SINGLE DOSE
     Route: 048
     Dates: start: 20230907
  2. IPRATROPIUM BROMIDE [Suspect]
     Active Substance: IPRATROPIUM BROMIDE\IPRATROPIUM BROMIDE ANHYDROUS
     Indication: Incorrect route of product administration
     Dosage: 500 UG
     Route: 048
     Dates: start: 20230907
  3. BECLOMETHASONE DIPROPIONATE [Suspect]
     Active Substance: BECLOMETHASONE DIPROPIONATE
     Indication: Incorrect route of product administration
     Dosage: 0.8 MG
     Route: 048
     Dates: start: 20230907

REACTIONS (2)
  - Tachycardia [Recovered/Resolved]
  - Product use issue [Recovered/Resolved]

NARRATIVE: CASE EVENT DATE: 20230907
